FAERS Safety Report 9812861 (Version 1)
Quarter: 2014Q1

REPORT INFORMATION
  Report Type: Spontaneous
  Country: US (occurrence: US)
  Receive Date: 20140113
  Receipt Date: 20140113
  Transmission Date: 20141002
  Serious: No
  Sender: FDA-Public Use
  Company Number: US-PFIZER INC-2014008673

PATIENT
  Age: 25 Year
  Sex: Male
  Weight: 77.1 kg

DRUGS (7)
  1. XANAX [Suspect]
     Indication: ANXIETY
     Dosage: 2 MG, AS NEEDED
  2. XANAX [Suspect]
     Indication: PANIC ATTACK
     Dosage: 2 MG, AS NEEDED
     Dates: start: 201311
  3. XANAX [Suspect]
     Dosage: UNK
     Dates: start: 201311
  4. XANAX [Suspect]
     Dosage: TOOK 20-30 MG OF MEDICATION
  5. PROZAC [Concomitant]
     Dosage: UNK
  6. CLONIDINE [Concomitant]
     Dosage: UNK
  7. NEXIUM [Concomitant]
     Dosage: UNK

REACTIONS (2)
  - Drug ineffective [Unknown]
  - Intentional drug misuse [Unknown]
